FAERS Safety Report 4449396-5 (Version None)
Quarter: 2004Q3

REPORT INFORMATION
  Report Type: 
  Country: None (occurrence: None)
  Receive Date: 20040914
  Receipt Date: 20040707
  Transmission Date: 20050211
  Serious: Yes (Death)
  Sender: FDA-Public Use
  Company Number: 2004-118251-NL

PATIENT

DRUGS (1)
  1. REMERON [Suspect]

REACTIONS (2)
  - ANOREXIA [None]
  - DRUG TOXICITY [None]
